FAERS Safety Report 19710249 (Version 1)
Quarter: 2021Q3

REPORT INFORMATION
  Report Type: Spontaneous
  Country: US (occurrence: US)
  Receive Date: 20210817
  Receipt Date: 20210817
  Transmission Date: 20211014
  Serious: Yes (Hospitalization, Other)
  Sender: FDA-Public Use
  Company Number: US-LUPIN PHARMACEUTICALS INC.-2021-15047

PATIENT
  Age: 39 Year
  Sex: Female

DRUGS (1)
  1. OXYCODONE [Suspect]
     Active Substance: OXYCODONE
     Indication: PRODUCT USED FOR UNKNOWN INDICATION
     Dosage: UNK (FORM: INJECTION)
     Route: 042

REACTIONS (3)
  - Drug abuse [Unknown]
  - Staphylococcal bacteraemia [Recovered/Resolved]
  - Cardiac valve vegetation [Recovered/Resolved]
